FAERS Safety Report 25279679 (Version 1)
Quarter: 2025Q2

REPORT INFORMATION
  Report Type: Spontaneous
  Country: US (occurrence: US)
  Receive Date: 20250507
  Receipt Date: 20250507
  Transmission Date: 20250716
  Serious: Yes (Other)
  Sender: TAKEDA
  Company Number: US-TAKEDA-2025TUS042634

PATIENT
  Age: 53 Year
  Sex: Male

DRUGS (19)
  1. LISDEXAMFETAMINE DIMESYLATE [Suspect]
     Active Substance: LISDEXAMFETAMINE DIMESYLATE
     Indication: Attention deficit hyperactivity disorder
     Dosage: 30 MILLIGRAM, QD
  2. LISDEXAMFETAMINE DIMESYLATE [Suspect]
     Active Substance: LISDEXAMFETAMINE DIMESYLATE
     Dosage: 50 MILLIGRAM, QD
  3. LISDEXAMFETAMINE DIMESYLATE [Suspect]
     Active Substance: LISDEXAMFETAMINE DIMESYLATE
     Dosage: 70 MILLIGRAM, QD
  4. TRAZODONE [Concomitant]
     Active Substance: TRAZODONE HYDROCHLORIDE
     Indication: Insomnia
     Dosage: 25 MILLIGRAM, QD
  5. BUPROPION [Concomitant]
     Active Substance: BUPROPION
     Indication: Depression
  6. SERTRALINE [Concomitant]
     Active Substance: SERTRALINE HYDROCHLORIDE
     Indication: Depression
  7. ASCORBIC ACID [Concomitant]
     Active Substance: ASCORBIC ACID
  8. ATORVASTATIN [Concomitant]
     Active Substance: ATORVASTATIN
  9. VARDENAFIL [Concomitant]
     Active Substance: VARDENAFIL HYDROCHLORIDE
  10. DICLOFENAC [Concomitant]
     Active Substance: DICLOFENAC
  11. ERGOCALCIFEROL [Concomitant]
     Active Substance: ERGOCALCIFEROL
  12. FERROUS GLUCONATE [Concomitant]
     Active Substance: FERROUS GLUCONATE
  13. FLUTICASONE PROPIONATE [Concomitant]
     Active Substance: FLUTICASONE PROPIONATE
  14. LISINOPRIL [Concomitant]
     Active Substance: LISINOPRIL
  15. NALOXEGOL OXALATE [Concomitant]
     Active Substance: NALOXEGOL OXALATE
  16. TADALAFIL [Concomitant]
     Active Substance: TADALAFIL
  17. TAPENTADOL [Concomitant]
     Active Substance: TAPENTADOL
  18. VALACYCLOVIR [Concomitant]
     Active Substance: VALACYCLOVIR HYDROCHLORIDE
  19. TRETINOIN [Concomitant]
     Active Substance: TRETINOIN

REACTIONS (1)
  - Delusion of parasitosis [Recovered/Resolved]
